FAERS Safety Report 14272526 (Version 1)
Quarter: 2017Q4

REPORT INFORMATION
  Report Type: Spontaneous
  Country: US (occurrence: US)
  Receive Date: 20171211
  Receipt Date: 20171211
  Transmission Date: 20180321
  Serious: Yes (Disabling)
  Sender: FDA-Public Use
  Company Number: None

PATIENT
  Sex: Female

DRUGS (1)
  1. METOPROLO ER SUCCINATE 50 MG [Suspect]
     Active Substance: METOPROLOL SUCCINATE
     Dosage: ?          QUANTITY:1 TABLET(S);?
     Route: 048

REACTIONS (2)
  - Wheezing [None]
  - Lower respiratory tract congestion [None]

NARRATIVE: CASE EVENT DATE: 20171210
